FAERS Safety Report 6302800-X (Version None)
Quarter: 2009Q3

REPORT INFORMATION
  Report Type: 
  Country: None (occurrence: None)
  Receive Date: 20090810
  Receipt Date: 20090619
  Transmission Date: 20100115
  Serious: No
  Sender: FDA-Public Use
  Company Number: A0789736A

PATIENT
  Age: 21 Year
  Sex: Female
  Weight: 54.5 kg

DRUGS (2)
  1. ALTABAX [Suspect]
     Route: 061
     Dates: start: 20090606, end: 20090606
  2. NO CONCURRENT MEDICATION [Concomitant]

REACTIONS (2)
  - APPLICATION SITE IRRITATION [None]
  - APPLICATION SITE URTICARIA [None]
